FAERS Safety Report 9791781 (Version 3)
Quarter: 2014Q1

REPORT INFORMATION
  Report Type: Report from Study
  Country: AR (occurrence: AR)
  Receive Date: 20140102
  Receipt Date: 20140107
  Transmission Date: 20141002
  Serious: Yes (Life-Threatening, Hospitalization)
  Sender: FDA-Public Use
  Company Number: AR-ROCHE-1300144

PATIENT
  Age: 53 Year
  Sex: Female
  Weight: 95.2 kg

DRUGS (14)
  1. TOCILIZUMAB [Suspect]
     Indication: RHEUMATOID ARTHRITIS
     Dosage: MOST RECENT DOSE ON 22/JAN/2013 WITH LAST DOSE ADMINISTERED 4 MG/KG
     Route: 042
     Dates: start: 20120515
  2. METHOTREXATE [Concomitant]
     Indication: RHEUMATOID ARTHRITIS
     Route: 030
     Dates: start: 20100217, end: 20120613
  3. METHOTREXATE [Concomitant]
     Route: 030
     Dates: start: 20120614, end: 20131030
  4. METHOTREXATE [Concomitant]
     Route: 048
     Dates: start: 20131223
  5. FOLIC ACID [Concomitant]
     Route: 048
     Dates: start: 200612, end: 20131030
  6. PREDNISONE [Concomitant]
     Indication: RHEUMATOID ARTHRITIS
     Route: 048
     Dates: start: 20090821
  7. PREDNISONE [Concomitant]
     Route: 048
     Dates: start: 20131221
  8. OXAGESIC [Concomitant]
     Indication: RHEUMATOID ARTHRITIS
     Route: 048
     Dates: start: 201112
  9. RITUXIMAB [Concomitant]
     Indication: RHEUMATOID ARTHRITIS
     Dosage: SINGLE DOSE
     Route: 042
     Dates: start: 20070507, end: 20070507
  10. RITUXIMAB [Concomitant]
     Dosage: SINGLE DOSE
     Route: 042
     Dates: start: 20070521, end: 20070521
  11. URSODEOXYCHOLIC ACID [Concomitant]
     Indication: HEPATIC ENZYME INCREASED
     Route: 048
     Dates: start: 20120627, end: 20121126
  12. LEVOCETIRIZINE [Concomitant]
     Indication: URTICARIA
     Route: 061
     Dates: start: 20120508, end: 20120514
  13. HYDROCORTISONE [Concomitant]
     Indication: RHEUMATOID ARTHRITIS
     Route: 042
     Dates: start: 20131219, end: 20131220
  14. DICLOFENAC [Concomitant]
     Indication: RHEUMATOID ARTHRITIS
     Route: 042
     Dates: start: 20131220, end: 20131223

REACTIONS (1)
  - Tumour invasion [Recovered/Resolved with Sequelae]
